FAERS Safety Report 13993517 (Version 5)
Quarter: 2019Q2

REPORT INFORMATION
  Report Type: Spontaneous
  Country: US (occurrence: US)
  Receive Date: 20170920
  Receipt Date: 20190612
  Transmission Date: 20190711
  Serious: Yes (Death, Hospitalization)
  Sender: FDA-Public Use
  Company Number: US-ACTELION-A-NJ2017-159525

PATIENT
  Sex: Female
  Weight: 49.89 kg

DRUGS (2)
  1. REMODULIN [Concomitant]
     Active Substance: TREPROSTINIL
  2. OPSUMIT [Suspect]
     Active Substance: MACITENTAN
     Indication: PULMONARY ARTERIAL HYPERTENSION
     Dosage: 10 MG, QD
     Route: 048

REACTIONS (9)
  - Respiratory failure [Fatal]
  - Emphysema [Fatal]
  - Fluid retention [Recovering/Resolving]
  - Chronic obstructive pulmonary disease [Fatal]
  - Pulmonary hypertension [Fatal]
  - Headache [Recovering/Resolving]
  - Dyspnoea [Recovering/Resolving]
  - Product dose omission [Unknown]
  - Polyuria [Unknown]
